FAERS Safety Report 9746103 (Version 3)
Quarter: 2015Q3

REPORT INFORMATION
  Report Type: Spontaneous
  Country: US (occurrence: US)
  Receive Date: 20131211
  Receipt Date: 20150722
  Transmission Date: 20151125
  Serious: No
  Sender: FDA-Public Use
  Company Number: US-GILEAD-2009-0024492

PATIENT
  Age: 64 Year
  Sex: Male

DRUGS (1)
  1. ATRIPLA [Suspect]
     Active Substance: EFAVIRENZ\EMTRICITABINE\TENOFOVIR DISOPROXIL FUMARATE
     Indication: HIV INFECTION

REACTIONS (6)
  - Blood bicarbonate decreased [Recovered/Resolved]
  - Proteinuria [Recovered/Resolved]
  - Renal failure [Recovered/Resolved]
  - Glycosuria [Recovered/Resolved]
  - Blood glucose increased [Recovered/Resolved]
  - Blood potassium decreased [Recovered/Resolved]
